FAERS Safety Report 6784447-4 (Version None)
Quarter: 2010Q2

REPORT INFORMATION
  Report Type: 
  Country: None (occurrence: None)
  Receive Date: 20100622
  Receipt Date: 20100614
  Transmission Date: 20101027
  Serious: Yes (Other)
  Sender: FDA-Public Use
  Company Number: US-JNJFOC-20100604789

PATIENT
  Sex: Female
  Weight: 64.86 kg

DRUGS (2)
  1. TOPAMAX [Suspect]
     Indication: MIGRAINE PROPHYLAXIS
     Route: 048
  2. MOTRIN [Concomitant]
     Indication: PAIN
     Route: 065

REACTIONS (4)
  - DYSPHEMIA [None]
  - LETHARGY [None]
  - PRODUCT QUALITY ISSUE [None]
  - TOOTHACHE [None]
